FAERS Safety Report 22887800 (Version 2)
Quarter: 2023Q4

REPORT INFORMATION
  Report Type: Report from Study
  Country: CA (occurrence: CA)
  Receive Date: 20230831
  Receipt Date: 20231004
  Transmission Date: 20240110
  Serious: Yes (Hospitalization, Other)
  Sender: FDA-Public Use
  Company Number: CA-JNJFOC-20221233457

PATIENT
  Age: 65 Year
  Sex: Male
  Weight: 113 kg

DRUGS (2)
  1. REMICADE [Suspect]
     Active Substance: INFLIXIMAB
     Indication: Crohn^s disease
     Dosage: LAST INFUSION ON 17-JUL-2023?EXPIRY: -NOV-2025
     Route: 041
  2. PREDNISONE [Concomitant]
     Active Substance: PREDNISONE
     Indication: Product used for unknown indication
     Dosage: TAPERING DOSE.
     Route: 048
     Dates: start: 20230820

REACTIONS (4)
  - Colon operation [Unknown]
  - Intestinal obstruction [Unknown]
  - Non-Hodgkin^s lymphoma [Unknown]
  - Fatigue [Unknown]

NARRATIVE: CASE EVENT DATE: 20221212
